FAERS Safety Report 13804316 (Version 1)
Quarter: 2017Q3

REPORT INFORMATION
  Report Type: Spontaneous
  Country: GB (occurrence: GB)
  Receive Date: 20170728
  Receipt Date: 20170728
  Transmission Date: 20171127
  Serious: Yes (Other)
  Sender: FDA-Public Use
  Company Number: GB-TORRENT-00008871

PATIENT
  Age: 74 Year
  Sex: Female
  Weight: 70 kg

DRUGS (10)
  1. GLYCERYL TRINITRATE [Concomitant]
     Active Substance: NITROGLYCERIN
  2. BISOPROLOL [Concomitant]
     Active Substance: BISOPROLOL
  3. RAMIPRIL. [Concomitant]
     Active Substance: RAMIPRIL
  4. ATORVASTATIN [Concomitant]
     Active Substance: ATORVASTATIN
  5. ELIQUIS [Suspect]
     Active Substance: APIXABAN
  6. FERROUS SULFATE. [Concomitant]
     Active Substance: FERROUS SULFATE
  7. CLOPIDOGREL [Suspect]
     Active Substance: CLOPIDOGREL BISULFATE
  8. EPLERENONE. [Concomitant]
     Active Substance: EPLERENONE
  9. LANSOPRAZOLE. [Concomitant]
     Active Substance: LANSOPRAZOLE
  10. BUMETANIDE. [Concomitant]
     Active Substance: BUMETANIDE

REACTIONS (6)
  - Rectal haemorrhage [Recovered/Resolved]
  - Labelled drug-drug interaction medication error [Unknown]
  - Cardiac failure [Unknown]
  - Peripheral swelling [Unknown]
  - Acute kidney injury [Unknown]
  - Oedema [Unknown]

NARRATIVE: CASE EVENT DATE: 201606
